FAERS Safety Report 17801921 (Version 1)
Quarter: 2020Q2

REPORT INFORMATION
  Report Type: Spontaneous
  Country: US (occurrence: US)
  Receive Date: 20200518
  Receipt Date: 20200518
  Transmission Date: 20200714
  Serious: Yes (Hospitalization)
  Sender: FDA-Public Use
  Company Number: None

PATIENT
  Age: 21 Year
  Sex: Male

DRUGS (1)
  1. HUMIRA [Suspect]
     Active Substance: ADALIMUMAB
     Indication: ANKYLOSING SPONDYLITIS
     Dosage: ?          OTHER FREQUENCY:ONE EVERY 14 DAYS;?
     Route: 058
     Dates: start: 20200124

REACTIONS (2)
  - Therapy interrupted [None]
  - Pilonidal cyst [None]

NARRATIVE: CASE EVENT DATE: 20200508
